FAERS Safety Report 18604608 (Version 2)
Quarter: 2021Q2

REPORT INFORMATION
  Report Type: Spontaneous
  Country: US (occurrence: US)
  Receive Date: 20201211
  Receipt Date: 20210406
  Transmission Date: 20210717
  Serious: Yes (Other)
  Sender: FDA-Public Use
  Company Number: NVSC2020US330422

PATIENT
  Sex: Female

DRUGS (1)
  1. VOLTAREN [Suspect]
     Active Substance: DICLOFENAC SODIUM
     Indication: PAIN IN EXTREMITY
     Dosage: UNK
     Route: 065
     Dates: start: 20200628, end: 20200628

REACTIONS (4)
  - Product use in unapproved indication [Unknown]
  - Anaphylactic reaction [Recovered/Resolved]
  - Swollen tongue [Unknown]
  - Pharyngeal swelling [Recovered/Resolved]
